FAERS Safety Report 5410357-0 (Version None)
Quarter: 2007Q3

REPORT INFORMATION
  Report Type: 
  Country: None (occurrence: None)
  Receive Date: 20070808
  Receipt Date: 20070803
  Transmission Date: 20080115
  Serious: Yes (Hospitalization)
  Sender: FDA-Public Use
  Company Number: GRT-2007-12996

PATIENT
  Age: 82 Year
  Sex: Female

DRUGS (5)
  1. LIDOCAINE [Suspect]
     Dosage: 1 PATCH A DAY
     Dates: start: 20070718
  2. MARIVARIN [Concomitant]
  3. ULTOP [Concomitant]
  4. LANITOP [Concomitant]
  5. LEKADOL [Concomitant]

REACTIONS (5)
  - ASCITES [None]
  - CARBOHYDRATE ANTIGEN 125 INCREASED [None]
  - FEMALE REPRODUCTIVE NEOPLASM [None]
  - LIVER FUNCTION TEST ABNORMAL [None]
  - NEOPLASM MALIGNANT [None]
